FAERS Safety Report 6664392-5 (Version None)
Quarter: 2010Q2

REPORT INFORMATION
  Report Type: 
  Country: None (occurrence: None)
  Receive Date: 20100401
  Receipt Date: 20100329
  Transmission Date: 20101027
  Serious: Yes (Death)
  Sender: FDA-Public Use
  Company Number: PHEH2010US03381

PATIENT
  Sex: Male
  Weight: 54.422 kg

DRUGS (2)
  1. EXJADE [Suspect]
     Indication: HAEMATOPOIETIC NEOPLASM
     Dosage: 1000 MG, QD
     Route: 048
     Dates: start: 20090217, end: 20100303
  2. EXJADE [Suspect]
     Indication: LYMPHATIC SYSTEM NEOPLASM

REACTIONS (1)
  - DEATH [None]
